FAERS Safety Report 14754944 (Version 1)
Quarter: 2018Q2

REPORT INFORMATION
  Report Type: Spontaneous
  Country: CO (occurrence: CO)
  Receive Date: 20180413
  Receipt Date: 20180413
  Transmission Date: 20180711
  Serious: Yes (Other)
  Sender: FDA-Public Use
  Company Number: CO-IPCA LABORATORIES LIMITED-IPC-2018-CO-000741

PATIENT

DRUGS (1)
  1. WARFARIN [Suspect]
     Active Substance: WARFARIN
     Indication: ANTICOAGULANT THERAPY
     Dosage: 17.5 MG, PER WEEK
     Route: 065

REACTIONS (2)
  - Haemorrhage [Unknown]
  - Anticoagulation drug level above therapeutic [Unknown]
